FAERS Safety Report 4772800-X (Version None)
Quarter: 2005Q3

REPORT INFORMATION
  Report Type: 
  Country: None (occurrence: None)
  Receive Date: 20050915
  Receipt Date: 20050915
  Transmission Date: 20060218
  Serious: Yes (Hospitalization)
  Sender: FDA-Public Use
  Company Number: None

PATIENT
  Age: 83 Year
  Weight: 63.1 kg

DRUGS (9)
  1. WARFARIN SODIUM [Suspect]
     Indication: ANTICOAGULANT THERAPY
     Dosage: 4 MG PO DAILY; CHRONIC
     Route: 048
  2. MELOXICAM [Suspect]
     Indication: ARTHRITIS
     Dosage: 7.5MG PO DAILY; CHRONIC
     Route: 048
  3. COUMADIN [Concomitant]
  4. LASIX [Concomitant]
  5. MOBIC [Concomitant]
  6. PREVACID [Concomitant]
  7. OXYBUTUNIN [Concomitant]
  8. BUMAX [Concomitant]
  9. EPOGEN [Concomitant]

REACTIONS (3)
  - COAGULOPATHY [None]
  - INTERNATIONAL NORMALISED RATIO INCREASED [None]
  - UPPER GASTROINTESTINAL HAEMORRHAGE [None]
